FAERS Safety Report 15099022 (Version 2)
Quarter: 2018Q3

REPORT INFORMATION
  Report Type: Spontaneous
  Country: US (occurrence: US)
  Receive Date: 20180702
  Receipt Date: 20180718
  Transmission Date: 20181010
  Serious: Yes (Hospitalization, Other)
  Sender: FDA-Public Use
  Company Number: US-LUNDBECK-DKLU2050814

PATIENT
  Age: 74 Year
  Sex: Female

DRUGS (5)
  1. NORTHERA [Suspect]
     Active Substance: DROXIDOPA
     Indication: DIZZINESS
     Route: 048
     Dates: start: 20180606
  2. NORTHERA [Suspect]
     Active Substance: DROXIDOPA
     Indication: ORTHOSTATIC HYPOTENSION
  3. NORTHERA [Suspect]
     Active Substance: DROXIDOPA
     Indication: AUTONOMIC NEUROPATHY
  4. MIDODRINE [Concomitant]
     Active Substance: MIDODRINE
     Indication: PRODUCT USED FOR UNKNOWN INDICATION
     Route: 065
  5. NORTHERA [Suspect]
     Active Substance: DROXIDOPA
     Indication: SYNCOPE

REACTIONS (14)
  - Concussion [Recovering/Resolving]
  - Disorientation [Recovering/Resolving]
  - Memory impairment [Unknown]
  - Cerebral haemorrhage [Recovering/Resolving]
  - Gait inability [Unknown]
  - Orthostatic hypotension [Not Recovered/Not Resolved]
  - Loss of consciousness [Recovering/Resolving]
  - Blood pressure increased [Recovering/Resolving]
  - Drug dose omission [Unknown]
  - Depressed level of consciousness [Unknown]
  - Head injury [Recovering/Resolving]
  - Dizziness [Unknown]
  - Fall [Recovering/Resolving]
  - Seizure [Unknown]

NARRATIVE: CASE EVENT DATE: 201806
